FAERS Safety Report 16956529 (Version 1)
Quarter: 2019Q4

REPORT INFORMATION
  Report Type: Spontaneous
  Country: TW (occurrence: TW)
  Receive Date: 20191024
  Receipt Date: 20191024
  Transmission Date: 20200122
  Serious: Yes (Other)
  Sender: FDA-Public Use
  Company Number: TW-GLAXOSMITHKLINE-TW2019GSK189253

PATIENT
  Age: 36 Year
  Sex: Female

DRUGS (40)
  1. RISPERIDONE. [Suspect]
     Active Substance: RISPERIDONE
     Indication: PSYCHOTIC DISORDER
     Dosage: 4 (MG/D)
     Dates: end: 20170125
  2. FLUPENTIXOL [Suspect]
     Active Substance: FLUPENTIXOL
     Dosage: 9 (MG/D)
     Dates: start: 20170811
  3. FLUOXETINE [Suspect]
     Active Substance: FLUOXETINE HYDROCHLORIDE
     Indication: DEPRESSION
     Dosage: 20 (MG/D)
     Dates: start: 20180109
  4. QUETIAPINE. [Suspect]
     Active Substance: QUETIAPINE
     Dosage: 400 (MG/D)
     Dates: start: 20171204, end: 20171211
  5. QUETIAPINE. [Suspect]
     Active Substance: QUETIAPINE
     Dosage: 200 (MG/D)
     Dates: start: 20171211
  6. LITHIUM. [Suspect]
     Active Substance: LITHIUM
     Indication: DEPRESSION
     Dosage: 600 (MG/D)
     Dates: start: 20170607
  7. ZOTEPINE [Suspect]
     Active Substance: ZOTEPINE
     Dosage: 125 (MG/D)
     Dates: start: 20171201, end: 20171204
  8. ZOTEPINE [Suspect]
     Active Substance: ZOTEPINE
     Dosage: 175 (MG/D)
     Dates: start: 20171204, end: 20171211
  9. CHLORPROMAZINE. [Suspect]
     Active Substance: CHLORPROMAZINE
     Indication: PRODUCT USED FOR UNKNOWN INDICATION
     Dosage: 50 (MG/D)
     Dates: start: 20170811
  10. PROPRANOLOL [Concomitant]
     Active Substance: PROPRANOLOL HYDROCHLORIDE
     Dosage: 30 (MG/D)
     Dates: start: 20180115
  11. FLUPENTIXOL [Suspect]
     Active Substance: FLUPENTIXOL
     Dosage: 9 (MG/D)
     Dates: start: 20170601, end: 20170607
  12. ZOTEPINE [Suspect]
     Active Substance: ZOTEPINE
     Indication: PSYCHOTIC DISORDER
     Dosage: ZOTEPINE 75 MG
     Dates: start: 20171127, end: 20171201
  13. ARIPIPRAZOLE. [Suspect]
     Active Substance: ARIPIPRAZOLE
     Indication: PRODUCT USED FOR UNKNOWN INDICATION
     Dosage: 20 (MG/D)
     Dates: start: 20170317
  14. TRIHEXYPHENIDYL [Suspect]
     Active Substance: TRIHEXYPHENIDYL
     Indication: PRODUCT USED FOR UNKNOWN INDICATION
     Dosage: 6 (MG/D)
     Dates: start: 20171226
  15. RISPERIDONE. [Suspect]
     Active Substance: RISPERIDONE
     Dosage: 6 (MG/D)
     Dates: start: 20170125, end: 20170317
  16. FLUPENTIXOL [Suspect]
     Active Substance: FLUPENTIXOL
     Dosage: 3 (MG/D)
     Dates: start: 20170805, end: 20170808
  17. FLUPENTIXOL [Suspect]
     Active Substance: FLUPENTIXOL
     Dosage: 6 (MG/D)
     Dates: start: 20170808, end: 20170811
  18. ZOTEPINE [Suspect]
     Active Substance: ZOTEPINE
     Dosage: 150 (MG/D)
     Dates: start: 20171211
  19. CITALOPRAM [Suspect]
     Active Substance: CITALOPRAM HYDROBROMIDE
     Indication: DEPRESSION
     Dosage: 10 (MG/D)
     Dates: start: 20170306, end: 20171218
  20. CITALOPRAM [Suspect]
     Active Substance: CITALOPRAM HYDROBROMIDE
     Dosage: 20 (MG/D)
     Dates: start: 20171218
  21. CLOZAPIN [Suspect]
     Active Substance: CLOZAPINE
     Dosage: 100 (MG/D)
     Dates: start: 20180110
  22. LAMOTRIGINE. [Suspect]
     Active Substance: LAMOTRIGINE
     Dosage: 50 (MG/D)
     Dates: start: 20171208, end: 20180109
  23. RISPERIDONE. [Suspect]
     Active Substance: RISPERIDONE
     Dosage: 2 (MG/D)
     Dates: start: 20170317
  24. QUETIAPINE. [Suspect]
     Active Substance: QUETIAPINE
     Dosage: 600 (MG/D)
     Dates: start: 20170805, end: 20171124
  25. BIPERIDEN [Suspect]
     Active Substance: BIPERIDEN
     Dosage: 6 (MG/D)
     Dates: start: 20180108
  26. LAMOTRIGINE. [Suspect]
     Active Substance: LAMOTRIGINE
     Indication: SCHIZOPHRENIA
     Dosage: 25 (MG/D)
     Dates: start: 20171205, end: 20171208
  27. QUETIAPINE. [Suspect]
     Active Substance: QUETIAPINE
     Dosage: 800 (MG/D)
     Dates: start: 20171124, end: 20171127
  28. FLUPENTIXOL [Suspect]
     Active Substance: FLUPENTIXOL
     Dosage: 6 (MG/D)
     Dates: start: 20170607, end: 20171020
  29. BIPERIDEN [Suspect]
     Active Substance: BIPERIDEN
     Indication: PRODUCT USED FOR UNKNOWN INDICATION
     Dosage: 8 (MG/D)
     Dates: start: 20171229, end: 20180108
  30. CLOZAPIN [Suspect]
     Active Substance: CLOZAPINE
     Indication: PRODUCT USED FOR UNKNOWN INDICATION
     Dosage: 50 (MG/D)
     Dates: start: 20180108, end: 20180110
  31. BETAXOLOL. [Suspect]
     Active Substance: BETAXOLOL
     Indication: PRODUCT USED FOR UNKNOWN INDICATION
     Dosage: 20 (MG/D)
     Dates: start: 20171211
  32. QUETIAPINE. [Suspect]
     Active Substance: QUETIAPINE
     Dosage: 600 (MG/D)
     Dates: start: 20171127, end: 20171204
  33. FLUPENTIXOL [Suspect]
     Active Substance: FLUPENTIXOL
     Dosage: 6 (MG/D)
     Dates: start: 20170503, end: 20190601
  34. HALOPERIDOL. [Suspect]
     Active Substance: HALOPERIDOL
     Indication: DELUSION
  35. PROPRANOLOL [Concomitant]
     Active Substance: PROPRANOLOL HYDROCHLORIDE
     Indication: PRODUCT USED FOR UNKNOWN INDICATION
     Dosage: 80 (MG/D)
     Dates: end: 20171211
  36. QUETIAPINE. [Suspect]
     Active Substance: QUETIAPINE
     Indication: PSYCHOTIC DISORDER
     Dosage: 400 (MG/D)
     Dates: start: 20170326, end: 20170805
  37. LITHIUM. [Suspect]
     Active Substance: LITHIUM
     Indication: FEAR
  38. FLUPENTIXOL [Suspect]
     Active Substance: FLUPENTIXOL
     Indication: PSYCHOTIC DISORDER
     Dosage: 3 (MG/D)
     Dates: start: 20170326, end: 20170503
  39. DULOXETINE. [Suspect]
     Active Substance: DULOXETINE
     Indication: DEPRESSION
     Dosage: 30 (MG/D)
     Dates: start: 20170505, end: 20170805
  40. HALOPERIDOL. [Suspect]
     Active Substance: HALOPERIDOL
     Indication: HALLUCINATION, AUDITORY
     Dosage: 10 (MG/D)
     Dates: start: 20170620, end: 20170805

REACTIONS (27)
  - Tachycardia [Unknown]
  - Drug ineffective [Unknown]
  - Anosognosia [Unknown]
  - Water intoxication [Unknown]
  - Insomnia [Unknown]
  - Extrapyramidal disorder [Unknown]
  - Hypotension [Unknown]
  - Condition aggravated [Unknown]
  - Bedridden [Unknown]
  - Off label use [Unknown]
  - Drug resistance [Unknown]
  - Hyperprolactinaemia [Unknown]
  - Fear [Unknown]
  - Decreased appetite [Recovering/Resolving]
  - Dystonia [Unknown]
  - Rash [Recovering/Resolving]
  - Hallucination, auditory [Recovering/Resolving]
  - Muscle rigidity [Unknown]
  - Skin exfoliation [Recovering/Resolving]
  - Skin lesion [Recovering/Resolving]
  - Depressed mood [Unknown]
  - Impulse-control disorder [Unknown]
  - Depression [Unknown]
  - Delusion [Unknown]
  - Blunted affect [Unknown]
  - Fatigue [Unknown]
  - Decreased activity [Unknown]

NARRATIVE: CASE EVENT DATE: 20170706
